FAERS Safety Report 16532887 (Version 1)
Quarter: 2019Q3

REPORT INFORMATION
  Report Type: Spontaneous
  Country: US (occurrence: US)
  Receive Date: 20190705
  Receipt Date: 20190705
  Transmission Date: 20191004
  Serious: No
  Sender: FDA-Public Use
  Company Number: US-009507513-1805USA011421

PATIENT
  Sex: Female
  Weight: 88.44 kg

DRUGS (5)
  1. STERILE DILUENT (WATER) [Suspect]
     Active Substance: WATER
     Dosage: UNK
     Dates: start: 20140822
  2. ZOSTAVAX [Suspect]
     Active Substance: VARICELLA-ZOSTER VIRUS STRAIN OKA/MERCK LIVE ANTIGEN
     Indication: PROPHYLAXIS
  3. ZOSTAVAX [Suspect]
     Active Substance: VARICELLA-ZOSTER VIRUS STRAIN OKA/MERCK LIVE ANTIGEN
     Indication: ROUTINE HEALTH MAINTENANCE
     Dosage: .65 MILLILITER
     Route: 058
     Dates: start: 20140822, end: 20140822
  4. EPIPEN [Concomitant]
     Active Substance: EPINEPHRINE
     Indication: ALLERGY TO ARTHROPOD STING
     Dosage: UNK
     Route: 065
     Dates: start: 1990
  5. NECON [Concomitant]
     Active Substance: ETHINYL ESTRADIOL\NORETHINDRONE
     Indication: CONTRACEPTION
     Dosage: 1/35 MCG
     Route: 065
     Dates: start: 20131202

REACTIONS (6)
  - Vaccination failure [Not Recovered/Not Resolved]
  - Medium-chain acyl-coenzyme A dehydrogenase deficiency [Not Recovered/Not Resolved]
  - Vaccination site rash [Unknown]
  - Vaccination complication [Unknown]
  - Post herpetic neuralgia [Unknown]
  - Herpes zoster [Not Recovered/Not Resolved]

NARRATIVE: CASE EVENT DATE: 20140823
